FAERS Safety Report 6079616-5 (Version None)
Quarter: 2009Q1

REPORT INFORMATION
  Report Type: 
  Country: None (occurrence: None)
  Receive Date: 20090212
  Receipt Date: 20090203
  Transmission Date: 20090719
  Serious: Yes (Hospitalization)
  Sender: FDA-Public Use
  Company Number: 168026

PATIENT
  Age: 49 Year
  Sex: Female
  Weight: 58 kg

DRUGS (7)
  1. CARBOPLATIN [Suspect]
     Indication: NON-SMALL CELL LUNG CANCER
     Dosage: INTRAVENOUS
     Route: 042
     Dates: start: 20081222
  2. PACLITAXEL [Suspect]
     Indication: NON-SMALL CELL LUNG CANCER
     Dosage: INTRAVENOUS
     Route: 042
     Dates: start: 20081222
  3. () [Suspect]
     Indication: NON-SMALL CELL LUNG CANCER
     Dosage: 1160 MG, INTRAVENOUS
     Route: 042
     Dates: start: 20081222
  4. FENTANYL [Concomitant]
  5. (PARACETAMOL) [Concomitant]
  6. (AMITRIPTYLINE) [Concomitant]
  7. DEXAMETHASONE [Concomitant]

REACTIONS (3)
  - DEHYDRATION [None]
  - NAUSEA [None]
  - VOMITING [None]
